FAERS Safety Report 4535321-5 (Version None)
Quarter: 2004Q4

REPORT INFORMATION
  Report Type: 
  Country: None (occurrence: None)
  Receive Date: 20041214
  Receipt Date: 20040915
  Transmission Date: 20050328
  Serious: No
  Sender: FDA-Public Use
  Company Number: 2004236601US

PATIENT
  Sex: Female

DRUGS (11)
  1. BEXTRA [Suspect]
     Indication: ARTHRITIS
     Dosage: 20 MG, QD, ORAL
     Route: 048
     Dates: end: 20040101
  2. CELEBREX [Concomitant]
  3. LIPITOR [Concomitant]
  4. ALLEGRA [Concomitant]
  5. ESTROGEN DOT [Concomitant]
  6. MULTIVITAMINS (PANTHENOL, RETINOL, ERGOCALCIFEROL) [Concomitant]
  7. VITAMIN C [Concomitant]
  8. ACIDOPHILLUS [Concomitant]
  9. VITAMIN E [Concomitant]
  10. CALCIUM [Concomitant]
  11. G + C WOMEN'S CYCLE ESTROGEN [Concomitant]

REACTIONS (9)
  - BLADDER DISORDER [None]
  - DIFFICULTY IN WALKING [None]
  - DRUG INEFFECTIVE [None]
  - DYSPAREUNIA [None]
  - FIBROMYALGIA [None]
  - JOINT SWELLING [None]
  - PAIN IN EXTREMITY [None]
  - POLLAKIURIA [None]
  - URINARY TRACT INFECTION [None]
